FAERS Safety Report 21190636 (Version 1)
Quarter: 2022Q3

REPORT INFORMATION
  Report Type: Spontaneous
  Country: ES (occurrence: ES)
  Receive Date: 20220809
  Receipt Date: 20220809
  Transmission Date: 20221026
  Serious: Yes (Other)
  Sender: FDA-Public Use
  Company Number: ES-PFIZER INC-202201038256

PATIENT
  Age: 64 Year
  Sex: Male

DRUGS (2)
  1. VORICONAZOLE [Suspect]
     Active Substance: VORICONAZOLE
     Indication: Aspergillus test positive
     Dosage: 200 MG, 2X/DAY
     Dates: start: 201709
  2. VORICONAZOLE [Suspect]
     Active Substance: VORICONAZOLE
     Indication: Pyrexia

REACTIONS (3)
  - Cytomegalovirus infection reactivation [Unknown]
  - Cytopenia [Unknown]
  - Transplant failure [Unknown]
